FAERS Safety Report 6255564-2 (Version None)
Quarter: 2009Q3

REPORT INFORMATION
  Report Type: 
  Country: None (occurrence: None)
  Receive Date: 20090702
  Receipt Date: 20090624
  Transmission Date: 20100115
  Serious: Yes (Life-Threatening)
  Sender: FDA-Public Use
  Company Number: JP-AMGEN-US343250

PATIENT
  Sex: Female

DRUGS (6)
  1. ENBREL [Suspect]
     Indication: RHEUMATOID ARTHRITIS
     Route: 058
     Dates: end: 20090324
  2. ENBREL [Suspect]
     Dosage: 25 MG 2X/WEEK, INJECTION
     Route: 058
     Dates: start: 20080407
  3. ISCOTIN [Concomitant]
     Indication: ANTIBIOTIC PROPHYLAXIS
     Route: 048
     Dates: start: 20080219, end: 20080722
  4. VITAMEDIN [Concomitant]
     Route: 048
  5. GLAKAY [Concomitant]
     Route: 048
  6. ALINAMIN F [Concomitant]
     Route: 048

REACTIONS (2)
  - TUBERCULOSIS [None]
  - VULVAL ULCERATION [None]
